FAERS Safety Report 9413001 (Version 1)
Quarter: 2013Q3

REPORT INFORMATION
  Report Type: Spontaneous
  Country: US (occurrence: US)
  Receive Date: 20130722
  Receipt Date: 20130722
  Transmission Date: 20140515
  Serious: Yes (Other)
  Sender: FDA-Public Use
  Company Number: US-GLAXOSMITHKLINE-A1033098A

PATIENT
  Age: 63 Year
  Sex: Male

DRUGS (11)
  1. LOVAZA [Suspect]
     Indication: BLOOD TRIGLYCERIDES INCREASED
     Dosage: 2G TWICE PER DAY
     Route: 048
     Dates: start: 2006
  2. BABY ASPIRIN [Concomitant]
  3. DIOVAN HCT [Concomitant]
  4. BYDUREON [Concomitant]
  5. FOLIC ACID [Concomitant]
  6. LIPITOR [Concomitant]
  7. METFORMIN [Concomitant]
  8. METOPROLOL [Concomitant]
  9. PLAVIX [Concomitant]
  10. TRILIPIX [Concomitant]
  11. VITAMIN D [Concomitant]

REACTIONS (1)
  - Prostate cancer [Recovered/Resolved]
